FAERS Safety Report 5625263-6 (Version None)
Quarter: 2008Q1

REPORT INFORMATION
  Report Type: 
  Country: None (occurrence: None)
  Receive Date: 20080208
  Receipt Date: 20080122
  Transmission Date: 20080703
  Serious: Yes (Other)
  Sender: FDA-Public Use
  Company Number: ENTC2008-0019

PATIENT
  Age: 79 Year
  Sex: Male

DRUGS (6)
  1. STALEVO 100 [Suspect]
     Indication: PARKINSON'S DISEASE
     Dosage: 100/25/200MG X 3
     Dates: start: 20061201
  2. SIFROL [Concomitant]
  3. IRBESARTAN [Concomitant]
  4. SINEMET [Concomitant]
  5. ACENOCOUMAROL [Concomitant]
  6. METOPROLOL TARTRATE SADOZ RET [Concomitant]

REACTIONS (1)
  - ARTHRALGIA [None]
